FAERS Safety Report 9398678 (Version 1)
Quarter: 2013Q3

REPORT INFORMATION
  Report Type: Report from Study
  Country: HK (occurrence: HK)
  Receive Date: 20130712
  Receipt Date: 20130712
  Transmission Date: 20140515
  Serious: Yes (Hospitalization)
  Sender: FDA-Public Use
  Company Number: HK-B.I. PHARMACEUTICALS,INC./RIDGEFIELD-2013-BI-19506BI

PATIENT
  Age: 52 Year
  Sex: Male
  Weight: 81.2 kg

DRUGS (1)
  1. BI 10773 [Suspect]
     Indication: TYPE 2 DIABETES MELLITUS
     Dosage: 10 MG
     Route: 048
     Dates: start: 20130205, end: 20130709

REACTIONS (2)
  - Jaundice cholestatic [Recovered/Resolved]
  - Hepatic enzyme increased [Not Recovered/Not Resolved]
